FAERS Safety Report 17674258 (Version 2)
Quarter: 2020Q3

REPORT INFORMATION
  Report Type: Other
  Country: FR (occurrence: FR)
  Receive Date: 20200416
  Receipt Date: 20200930
  Transmission Date: 20201102
  Serious: Yes (Death)
  Sender: FDA-Public Use
  Company Number: FR-CELLTRION INC.-2020FR021594

PATIENT

DRUGS (4)
  1. METHOTREXATE. [Suspect]
     Active Substance: METHOTREXATE
     Indication: CENTRAL NERVOUS SYSTEM LYMPHOMA
     Dosage: 2385 MG, SINGLE
     Route: 041
     Dates: start: 20190503, end: 20190503
  2. VINCRISTINE [VINCRISTINE SULFATE] [Suspect]
     Active Substance: VINCRISTINE SULFATE
     Indication: CENTRAL NERVOUS SYSTEM LYMPHOMA
     Dosage: 2 MG, 1 TOTAL
     Route: 041
     Dates: start: 20190503, end: 20190503
  3. RITUXIMAB (UNKNOWN) [Suspect]
     Active Substance: RITUXIMAB
     Indication: CENTRAL NERVOUS SYSTEM LYMPHOMA
     Dosage: 596.25 MG, SINGLE
     Route: 041
     Dates: start: 20190503, end: 20190503
  4. PROCARBAZINE [Suspect]
     Active Substance: PROCARBAZINE
     Indication: CENTRAL NERVOUS SYSTEM LYMPHOMA
     Dosage: 150 MG, QD
     Route: 048
     Dates: start: 20190503

REACTIONS (3)
  - Acute kidney injury [Fatal]
  - Overdose [Fatal]
  - Underdose [Unknown]

NARRATIVE: CASE EVENT DATE: 20190503
